FAERS Safety Report 7397446-9 (Version None)
Quarter: 2011Q2

REPORT INFORMATION
  Report Type: 
  Country: None (occurrence: None)
  Receive Date: 20110406
  Receipt Date: 20110322
  Transmission Date: 20111010
  Serious: Yes (Other)
  Sender: FDA-Public Use
  Company Number: PHHY2011US23849

PATIENT
  Sex: Female

DRUGS (1)
  1. RECLAST [Suspect]
     Dosage: 5 MG, YEARLY
     Route: 042
     Dates: start: 20110315

REACTIONS (4)
  - OCULAR HYPERAEMIA [None]
  - EYE SWELLING [None]
  - CONJUNCTIVAL OEDEMA [None]
  - PHOTOPHOBIA [None]
